FAERS Safety Report 19238490 (Version 1)
Quarter: 2021Q2

REPORT INFORMATION
  Report Type: Spontaneous
  Country: FR (occurrence: FR)
  Receive Date: 20210510
  Receipt Date: 20210510
  Transmission Date: 20210717
  Serious: Yes (Hospitalization)
  Sender: FDA-Public Use
  Company Number: NVSC2021FR094008

PATIENT
  Age: 24 Year
  Sex: Male
  Weight: 53 kg

DRUGS (11)
  1. CYCLOPHOSPHAMIDE. [Suspect]
     Active Substance: CYCLOPHOSPHAMIDE
     Indication: ACUTE LYMPHOCYTIC LEUKAEMIA
     Dosage: 1335 MG, 15QD
     Route: 042
     Dates: start: 20210308, end: 20210322
  2. KIDROLASE [Suspect]
     Active Substance: ASPARAGINASE
     Indication: ACUTE LYMPHOCYTIC LEUKAEMIA
     Dosage: 10680 IU (TOTAL)
     Route: 042
     Dates: start: 20210327, end: 20210327
  3. METHOTREXATE. [Suspect]
     Active Substance: METHOTREXATE
     Indication: ACUTE LYMPHOCYTIC LEUKAEMIA
     Dosage: 15 MG, 6QD
     Route: 065
     Dates: start: 20210225, end: 20210302
  4. DAUNORUBICINE [Suspect]
     Active Substance: DAUNORUBICIN
     Dosage: 53 MG, 15D
     Route: 042
     Dates: start: 20210308, end: 20210322
  5. DEPO?MEDROL [Suspect]
     Active Substance: METHYLPREDNISOLONE ACETATE
     Dosage: 40 MG, 3.5QD
     Route: 042
     Dates: start: 20210308, end: 20210325
  6. CYTARABINE. [Suspect]
     Active Substance: CYTARABINE
     Dosage: 40 MG, 6QD
     Route: 042
     Dates: start: 20210225, end: 20210302
  7. PREDNISONE. [Suspect]
     Active Substance: PREDNISONE
     Indication: ACUTE LYMPHOCYTIC LEUKAEMIA
     Dosage: 107 MG, 14D
     Route: 048
     Dates: start: 20210308, end: 20210321
  8. DEPO?MEDROL [Suspect]
     Active Substance: METHYLPREDNISOLONE ACETATE
     Indication: ACUTE LYMPHOCYTIC LEUKAEMIA
     Dosage: 40 MG, 6QD
     Route: 042
     Dates: start: 20210225, end: 20210302
  9. CYTARABINE. [Suspect]
     Active Substance: CYTARABINE
     Indication: ACUTE LYMPHOCYTIC LEUKAEMIA
     Dosage: 40 MG, 3.5QD
     Route: 042
     Dates: start: 20210308, end: 20210325
  10. METHOTREXATE. [Suspect]
     Active Substance: METHOTREXATE
     Dosage: 15 MG 3.5QD
     Route: 042
     Dates: start: 20210308, end: 20210325
  11. DAUNORUBICINE [Suspect]
     Active Substance: DAUNORUBICIN
     Indication: ACUTE LYMPHOCYTIC LEUKAEMIA
     Dosage: 89 MG, TID
     Route: 042
     Dates: start: 20210308, end: 20210310

REACTIONS (2)
  - Myocardial oedema [Recovered/Resolved]
  - Posterior reversible encephalopathy syndrome [Recovering/Resolving]

NARRATIVE: CASE EVENT DATE: 20210404
